FAERS Safety Report 4949046-5 (Version None)
Quarter: 2006Q1

REPORT INFORMATION
  Report Type: 
  Country: None (occurrence: None)
  Receive Date: 20060321
  Receipt Date: 20060217
  Transmission Date: 20060701
  Serious: Yes (Hospitalization)
  Sender: FDA-Public Use
  Company Number: FR-GLAXOSMITHKLINE-B0412739A

PATIENT
  Age: 63 Year
  Sex: Female
  Weight: 71 kg

DRUGS (1)
  1. LAMICTAL [Suspect]
     Indication: BACK PAIN
     Route: 048
     Dates: start: 20060205, end: 20060217

REACTIONS (8)
  - DRUG ADMINISTRATION ERROR [None]
  - ERYTHEMA [None]
  - HEPATOCELLULAR DAMAGE [None]
  - LEUKOPENIA [None]
  - PANCYTOPENIA [None]
  - PYREXIA [None]
  - RASH MACULO-PAPULAR [None]
  - THROMBOCYTOPENIA [None]
